FAERS Safety Report 25768565 (Version 1)
Quarter: 2025Q3

REPORT INFORMATION
  Report Type: Report from Study
  Country: KR (occurrence: KR)
  Receive Date: 20250905
  Receipt Date: 20250905
  Transmission Date: 20251020
  Serious: Yes (Hospitalization)
  Sender: MYLAN
  Company Number: KR-MYLANLABS-2025M1075162

PATIENT
  Sex: Male
  Weight: 64.1 kg

DRUGS (180)
  1. LIPITOR [Suspect]
     Active Substance: ATORVASTATIN CALCIUM
     Indication: Hyperlipidaemia
     Dosage: 10 MILLIGRAM, QD
  2. LIPITOR [Suspect]
     Active Substance: ATORVASTATIN CALCIUM
     Dosage: 10 MILLIGRAM, QD
     Route: 065
  3. LIPITOR [Suspect]
     Active Substance: ATORVASTATIN CALCIUM
     Dosage: 10 MILLIGRAM, QD
     Route: 065
  4. LIPITOR [Suspect]
     Active Substance: ATORVASTATIN CALCIUM
     Dosage: 10 MILLIGRAM, QD
  5. ALPRAZOLAM [Suspect]
     Active Substance: ALPRAZOLAM
     Indication: Prophylaxis
     Dosage: 0.125 MILLIGRAM, QD
     Dates: start: 20230102
  6. ALPRAZOLAM [Suspect]
     Active Substance: ALPRAZOLAM
     Indication: Depression
     Dosage: 0.125 MILLIGRAM, QD
     Route: 048
     Dates: start: 20230102
  7. ALPRAZOLAM [Suspect]
     Active Substance: ALPRAZOLAM
     Dosage: 0.125 MILLIGRAM, QD
     Route: 048
     Dates: start: 20230102
  8. ALPRAZOLAM [Suspect]
     Active Substance: ALPRAZOLAM
     Dosage: 0.125 MILLIGRAM, QD
     Dates: start: 20230102
  9. BEVACIZUMAB [Suspect]
     Active Substance: BEVACIZUMAB
     Indication: Colorectal cancer metastatic
     Dosage: 330 MILLIGRAM, BIWEEKLY
     Dates: start: 20221212, end: 20221212
  10. BEVACIZUMAB [Suspect]
     Active Substance: BEVACIZUMAB
     Dosage: 330 MILLIGRAM, BIWEEKLY
     Dates: start: 20221212, end: 20221212
  11. BEVACIZUMAB [Suspect]
     Active Substance: BEVACIZUMAB
     Dosage: 330 MILLIGRAM, BIWEEKLY
     Route: 042
     Dates: start: 20221212, end: 20221212
  12. BEVACIZUMAB [Suspect]
     Active Substance: BEVACIZUMAB
     Dosage: 330 MILLIGRAM, BIWEEKLY
     Route: 042
     Dates: start: 20221212, end: 20221212
  13. BEVACIZUMAB [Suspect]
     Active Substance: BEVACIZUMAB
     Dosage: 388 MILLIGRAM, BIWEEKLY
     Dates: start: 20221227, end: 20221227
  14. BEVACIZUMAB [Suspect]
     Active Substance: BEVACIZUMAB
     Dosage: 388 MILLIGRAM, BIWEEKLY
     Dates: start: 20221227, end: 20221227
  15. BEVACIZUMAB [Suspect]
     Active Substance: BEVACIZUMAB
     Dosage: 388 MILLIGRAM, BIWEEKLY
     Route: 042
     Dates: start: 20221227, end: 20221227
  16. BEVACIZUMAB [Suspect]
     Active Substance: BEVACIZUMAB
     Dosage: 388 MILLIGRAM, BIWEEKLY
     Route: 042
     Dates: start: 20221227, end: 20221227
  17. LACTULOSE [Suspect]
     Active Substance: LACTULOSE
     Indication: Constipation prophylaxis
     Dosage: 15 MILLILITER, Q8H
     Dates: start: 20221124, end: 20230105
  18. LACTULOSE [Suspect]
     Active Substance: LACTULOSE
     Dosage: 15 MILLILITER, Q8H
     Route: 065
     Dates: start: 20221124, end: 20230105
  19. LACTULOSE [Suspect]
     Active Substance: LACTULOSE
     Dosage: 15 MILLILITER, Q8H
     Route: 065
     Dates: start: 20221124, end: 20230105
  20. LACTULOSE [Suspect]
     Active Substance: LACTULOSE
     Dosage: 15 MILLILITER, Q8H
     Dates: start: 20221124, end: 20230105
  21. ESOMEPRAZOLE MAGNESIUM [Suspect]
     Active Substance: ESOMEPRAZOLE MAGNESIUM
     Indication: Prophylaxis
     Dosage: 20 MILLIGRAM, QD
     Dates: start: 2022, end: 20230105
  22. ESOMEPRAZOLE MAGNESIUM [Suspect]
     Active Substance: ESOMEPRAZOLE MAGNESIUM
     Dosage: 20 MILLIGRAM, QD
     Route: 065
     Dates: start: 2022, end: 20230105
  23. ESOMEPRAZOLE MAGNESIUM [Suspect]
     Active Substance: ESOMEPRAZOLE MAGNESIUM
     Dosage: 20 MILLIGRAM, QD
     Route: 065
     Dates: start: 2022, end: 20230105
  24. ESOMEPRAZOLE MAGNESIUM [Suspect]
     Active Substance: ESOMEPRAZOLE MAGNESIUM
     Dosage: 20 MILLIGRAM, QD
     Dates: start: 2022, end: 20230105
  25. CIMETIDINE [Suspect]
     Active Substance: CIMETIDINE
     Indication: Prophylaxis
     Dosage: 200 MILLIGRAM, Q8H
     Dates: start: 2022, end: 20230104
  26. CIMETIDINE [Suspect]
     Active Substance: CIMETIDINE
     Dosage: 200 MILLIGRAM, Q8H
     Route: 065
     Dates: start: 2022, end: 20230104
  27. CIMETIDINE [Suspect]
     Active Substance: CIMETIDINE
     Dosage: 200 MILLIGRAM, Q8H
     Route: 065
     Dates: start: 2022, end: 20230104
  28. CIMETIDINE [Suspect]
     Active Substance: CIMETIDINE
     Dosage: 200 MILLIGRAM, Q8H
     Dates: start: 2022, end: 20230104
  29. METFORMIN HYDROCHLORIDE [Suspect]
     Active Substance: METFORMIN HYDROCHLORIDE
     Indication: Hypertension
     Dosage: 500 MILLIGRAM, BID
     Dates: end: 20230105
  30. METFORMIN HYDROCHLORIDE [Suspect]
     Active Substance: METFORMIN HYDROCHLORIDE
     Dosage: 500 MILLIGRAM, BID
     Route: 065
     Dates: end: 20230105
  31. METFORMIN HYDROCHLORIDE [Suspect]
     Active Substance: METFORMIN HYDROCHLORIDE
     Dosage: 500 MILLIGRAM, BID
     Route: 065
     Dates: end: 20230105
  32. METFORMIN HYDROCHLORIDE [Suspect]
     Active Substance: METFORMIN HYDROCHLORIDE
     Dosage: 500 MILLIGRAM, BID
     Dates: end: 20230105
  33. DUTASTERIDE [Suspect]
     Active Substance: DUTASTERIDE
     Indication: Benign prostatic hyperplasia
     Dosage: 0.5 MILLIGRAM, QD
     Dates: end: 20221214
  34. DUTASTERIDE [Suspect]
     Active Substance: DUTASTERIDE
     Dosage: 0.5 MILLIGRAM, QD
     Route: 065
     Dates: end: 20221214
  35. DUTASTERIDE [Suspect]
     Active Substance: DUTASTERIDE
     Dosage: 0.5 MILLIGRAM, QD
     Route: 065
     Dates: end: 20221214
  36. DUTASTERIDE [Suspect]
     Active Substance: DUTASTERIDE
     Dosage: 0.5 MILLIGRAM, QD
     Dates: end: 20221214
  37. CANDESARTAN CILEXETIL [Suspect]
     Active Substance: CANDESARTAN CILEXETIL
     Indication: Hypertension
     Dosage: 8 MILLIGRAM, QD
     Dates: end: 20221221
  38. CANDESARTAN CILEXETIL [Suspect]
     Active Substance: CANDESARTAN CILEXETIL
     Dosage: 8 MILLIGRAM, QD
     Route: 065
     Dates: end: 20221221
  39. CANDESARTAN CILEXETIL [Suspect]
     Active Substance: CANDESARTAN CILEXETIL
     Dosage: 8 MILLIGRAM, QD
     Route: 065
     Dates: end: 20221221
  40. CANDESARTAN CILEXETIL [Suspect]
     Active Substance: CANDESARTAN CILEXETIL
     Dosage: 8 MILLIGRAM, QD
     Dates: end: 20221221
  41. LIMAPROST [Suspect]
     Active Substance: LIMAPROST
     Indication: Hyperlipidaemia
     Dosage: 5 MICROGRAM, Q8H
     Dates: end: 20221229
  42. LIMAPROST [Suspect]
     Active Substance: LIMAPROST
     Dosage: 5 MICROGRAM, Q8H
     Route: 065
     Dates: end: 20221229
  43. LIMAPROST [Suspect]
     Active Substance: LIMAPROST
     Dosage: 5 MICROGRAM, Q8H
     Route: 065
     Dates: end: 20221229
  44. LIMAPROST [Suspect]
     Active Substance: LIMAPROST
     Dosage: 5 MICROGRAM, Q8H
     Dates: end: 20221229
  45. METFORMIN HYDROCHLORIDE [Suspect]
     Active Substance: METFORMIN HYDROCHLORIDE
     Indication: Diabetes mellitus
     Dosage: 500 MILLIGRAM, BID
  46. METFORMIN HYDROCHLORIDE [Suspect]
     Active Substance: METFORMIN HYDROCHLORIDE
     Dosage: 500 MILLIGRAM, BID
     Route: 065
  47. METFORMIN HYDROCHLORIDE [Suspect]
     Active Substance: METFORMIN HYDROCHLORIDE
     Dosage: 500 MILLIGRAM, BID
     Route: 065
  48. METFORMIN HYDROCHLORIDE [Suspect]
     Active Substance: METFORMIN HYDROCHLORIDE
     Dosage: 500 MILLIGRAM, BID
  49. MORPHINE HYDROCHLORIDE [Suspect]
     Active Substance: MORPHINE HYDROCHLORIDE
     Indication: Cancer pain
     Dosage: 5 MILLIGRAM, QD
     Dates: start: 20221212, end: 20221219
  50. MORPHINE HYDROCHLORIDE [Suspect]
     Active Substance: MORPHINE HYDROCHLORIDE
     Dosage: 5 MILLIGRAM, QD
     Route: 065
     Dates: start: 20221212, end: 20221219
  51. MORPHINE HYDROCHLORIDE [Suspect]
     Active Substance: MORPHINE HYDROCHLORIDE
     Dosage: 5 MILLIGRAM, QD
     Route: 065
     Dates: start: 20221212, end: 20221219
  52. MORPHINE HYDROCHLORIDE [Suspect]
     Active Substance: MORPHINE HYDROCHLORIDE
     Dosage: 5 MILLIGRAM, QD
     Dates: start: 20221212, end: 20221219
  53. OXALIPLATIN [Suspect]
     Active Substance: OXALIPLATIN
     Indication: Colon cancer
     Dosage: 104 MILLIGRAM, QD
     Dates: start: 20221212, end: 20221212
  54. OXALIPLATIN [Suspect]
     Active Substance: OXALIPLATIN
     Dosage: 104 MILLIGRAM, QD
     Dates: start: 20221212, end: 20221212
  55. OXALIPLATIN [Suspect]
     Active Substance: OXALIPLATIN
     Dosage: 104 MILLIGRAM, QD
     Route: 065
     Dates: start: 20221212, end: 20221212
  56. OXALIPLATIN [Suspect]
     Active Substance: OXALIPLATIN
     Dosage: 104 MILLIGRAM, QD
     Route: 065
     Dates: start: 20221212, end: 20221212
  57. OXALIPLATIN [Suspect]
     Active Substance: OXALIPLATIN
     Dosage: 75 MILLIGRAM, QD
     Dates: start: 20221227, end: 20221227
  58. OXALIPLATIN [Suspect]
     Active Substance: OXALIPLATIN
     Dosage: 75 MILLIGRAM, QD
     Dates: start: 20221227, end: 20221227
  59. OXALIPLATIN [Suspect]
     Active Substance: OXALIPLATIN
     Dosage: 75 MILLIGRAM, QD
     Route: 065
     Dates: start: 20221227, end: 20221227
  60. OXALIPLATIN [Suspect]
     Active Substance: OXALIPLATIN
     Dosage: 75 MILLIGRAM, QD
     Route: 065
     Dates: start: 20221227, end: 20221227
  61. FLUOROURACIL [Suspect]
     Active Substance: FLUOROURACIL
     Indication: Colon cancer
     Dosage: 490 MILLIGRAM, QD
     Route: 065
     Dates: start: 20221212, end: 20221212
  62. FLUOROURACIL [Suspect]
     Active Substance: FLUOROURACIL
     Dosage: 490 MILLIGRAM, QD
     Dates: start: 20221212, end: 20221212
  63. FLUOROURACIL [Suspect]
     Active Substance: FLUOROURACIL
     Dosage: 490 MILLIGRAM, QD
     Dates: start: 20221212, end: 20221212
  64. FLUOROURACIL [Suspect]
     Active Substance: FLUOROURACIL
     Dosage: 490 MILLIGRAM, QD
     Route: 065
     Dates: start: 20221212, end: 20221212
  65. FLUOROURACIL [Suspect]
     Active Substance: FLUOROURACIL
     Dosage: 1470 MILLIGRAM, QD
     Route: 065
     Dates: start: 20221212, end: 20221213
  66. FLUOROURACIL [Suspect]
     Active Substance: FLUOROURACIL
     Dosage: 1470 MILLIGRAM, QD
     Dates: start: 20221212, end: 20221213
  67. FLUOROURACIL [Suspect]
     Active Substance: FLUOROURACIL
     Dosage: 1470 MILLIGRAM, QD
     Dates: start: 20221212, end: 20221213
  68. FLUOROURACIL [Suspect]
     Active Substance: FLUOROURACIL
     Dosage: 1470 MILLIGRAM, QD
     Route: 065
     Dates: start: 20221212, end: 20221213
  69. FLUOROURACIL [Suspect]
     Active Substance: FLUOROURACIL
     Dosage: 354 MILLIGRAM, QD
     Dates: start: 20221227, end: 20221227
  70. FLUOROURACIL [Suspect]
     Active Substance: FLUOROURACIL
     Dosage: 354 MILLIGRAM, QD
     Dates: start: 20221227, end: 20221227
  71. FLUOROURACIL [Suspect]
     Active Substance: FLUOROURACIL
     Dosage: 354 MILLIGRAM, QD
     Route: 065
     Dates: start: 20221227, end: 20221227
  72. FLUOROURACIL [Suspect]
     Active Substance: FLUOROURACIL
     Dosage: 354 MILLIGRAM, QD
     Route: 065
     Dates: start: 20221227, end: 20221227
  73. FLUOROURACIL [Suspect]
     Active Substance: FLUOROURACIL
     Dosage: 1062 MILLIGRAM, QD
     Dates: start: 20221227, end: 20221228
  74. FLUOROURACIL [Suspect]
     Active Substance: FLUOROURACIL
     Dosage: 1062 MILLIGRAM, QD
     Dates: start: 20221227, end: 20221228
  75. FLUOROURACIL [Suspect]
     Active Substance: FLUOROURACIL
     Dosage: 1062 MILLIGRAM, QD
     Route: 065
     Dates: start: 20221227, end: 20221228
  76. FLUOROURACIL [Suspect]
     Active Substance: FLUOROURACIL
     Dosage: 1062 MILLIGRAM, QD
     Route: 065
     Dates: start: 20221227, end: 20221228
  77. PALONOSETRON HYDROCHLORIDE [Suspect]
     Active Substance: PALONOSETRON HYDROCHLORIDE
     Indication: Prophylaxis
     Dosage: 0.25 MILLIGRAM, QD
     Dates: start: 20221212, end: 20221212
  78. PALONOSETRON HYDROCHLORIDE [Suspect]
     Active Substance: PALONOSETRON HYDROCHLORIDE
     Dosage: 0.25 MILLIGRAM, QD
     Dates: start: 20221212, end: 20221212
  79. PALONOSETRON HYDROCHLORIDE [Suspect]
     Active Substance: PALONOSETRON HYDROCHLORIDE
     Dosage: 0.25 MILLIGRAM, QD
     Route: 065
     Dates: start: 20221212, end: 20221212
  80. PALONOSETRON HYDROCHLORIDE [Suspect]
     Active Substance: PALONOSETRON HYDROCHLORIDE
     Dosage: 0.25 MILLIGRAM, QD
     Route: 065
     Dates: start: 20221212, end: 20221212
  81. PALONOSETRON HYDROCHLORIDE [Suspect]
     Active Substance: PALONOSETRON HYDROCHLORIDE
     Dosage: 0.25 MILLIGRAM, QD
     Dates: start: 20221227, end: 20221227
  82. PALONOSETRON HYDROCHLORIDE [Suspect]
     Active Substance: PALONOSETRON HYDROCHLORIDE
     Dosage: 0.25 MILLIGRAM, QD
     Dates: start: 20221227, end: 20221227
  83. PALONOSETRON HYDROCHLORIDE [Suspect]
     Active Substance: PALONOSETRON HYDROCHLORIDE
     Dosage: 0.25 MILLIGRAM, QD
     Route: 065
     Dates: start: 20221227, end: 20221227
  84. PALONOSETRON HYDROCHLORIDE [Suspect]
     Active Substance: PALONOSETRON HYDROCHLORIDE
     Dosage: 0.25 MILLIGRAM, QD
     Route: 065
     Dates: start: 20221227, end: 20221227
  85. METOCLOPRAMIDE HYDROCHLORIDE [Suspect]
     Active Substance: METOCLOPRAMIDE HYDROCHLORIDE
     Indication: Prophylaxis
     Dosage: 10 MILLIGRAM, QD
     Dates: start: 20221212, end: 20221215
  86. METOCLOPRAMIDE HYDROCHLORIDE [Suspect]
     Active Substance: METOCLOPRAMIDE HYDROCHLORIDE
     Dosage: 10 MILLIGRAM, QD
     Route: 065
     Dates: start: 20221212, end: 20221215
  87. METOCLOPRAMIDE HYDROCHLORIDE [Suspect]
     Active Substance: METOCLOPRAMIDE HYDROCHLORIDE
     Dosage: 10 MILLIGRAM, QD
     Route: 065
     Dates: start: 20221212, end: 20221215
  88. METOCLOPRAMIDE HYDROCHLORIDE [Suspect]
     Active Substance: METOCLOPRAMIDE HYDROCHLORIDE
     Dosage: 10 MILLIGRAM, QD
     Dates: start: 20221212, end: 20221215
  89. METOCLOPRAMIDE HYDROCHLORIDE [Suspect]
     Active Substance: METOCLOPRAMIDE HYDROCHLORIDE
     Indication: Prophylaxis
     Dosage: 10 MILLIGRAM, QD
     Dates: start: 20221227, end: 20221227
  90. METOCLOPRAMIDE HYDROCHLORIDE [Suspect]
     Active Substance: METOCLOPRAMIDE HYDROCHLORIDE
     Dosage: 10 MILLIGRAM, QD
     Route: 065
     Dates: start: 20221227, end: 20221227
  91. METOCLOPRAMIDE HYDROCHLORIDE [Suspect]
     Active Substance: METOCLOPRAMIDE HYDROCHLORIDE
     Dosage: 10 MILLIGRAM, QD
     Route: 065
     Dates: start: 20221227, end: 20221227
  92. METOCLOPRAMIDE HYDROCHLORIDE [Suspect]
     Active Substance: METOCLOPRAMIDE HYDROCHLORIDE
     Dosage: 10 MILLIGRAM, QD
     Dates: start: 20221227, end: 20221227
  93. DEXAMETHASONE SODIUM PHOSPHATE [Suspect]
     Active Substance: DEXAMETHASONE SODIUM PHOSPHATE
     Indication: Prophylaxis
     Dosage: 8 MILLIGRAM, QD
     Dates: start: 20221213, end: 20221214
  94. DEXAMETHASONE SODIUM PHOSPHATE [Suspect]
     Active Substance: DEXAMETHASONE SODIUM PHOSPHATE
     Dosage: 8 MILLIGRAM, QD
     Dates: start: 20221213, end: 20221214
  95. DEXAMETHASONE SODIUM PHOSPHATE [Suspect]
     Active Substance: DEXAMETHASONE SODIUM PHOSPHATE
     Dosage: 8 MILLIGRAM, QD
     Route: 065
     Dates: start: 20221213, end: 20221214
  96. DEXAMETHASONE SODIUM PHOSPHATE [Suspect]
     Active Substance: DEXAMETHASONE SODIUM PHOSPHATE
     Dosage: 8 MILLIGRAM, QD
     Route: 065
     Dates: start: 20221213, end: 20221214
  97. DEXAMETHASONE SODIUM PHOSPHATE [Suspect]
     Active Substance: DEXAMETHASONE SODIUM PHOSPHATE
     Dosage: 10 MILLIGRAM, QD
     Dates: start: 20221227, end: 20221227
  98. DEXAMETHASONE SODIUM PHOSPHATE [Suspect]
     Active Substance: DEXAMETHASONE SODIUM PHOSPHATE
     Dosage: 10 MILLIGRAM, QD
     Dates: start: 20221227, end: 20221227
  99. DEXAMETHASONE SODIUM PHOSPHATE [Suspect]
     Active Substance: DEXAMETHASONE SODIUM PHOSPHATE
     Dosage: 10 MILLIGRAM, QD
     Route: 065
     Dates: start: 20221227, end: 20221227
  100. DEXAMETHASONE SODIUM PHOSPHATE [Suspect]
     Active Substance: DEXAMETHASONE SODIUM PHOSPHATE
     Dosage: 10 MILLIGRAM, QD
     Route: 065
     Dates: start: 20221227, end: 20221227
  101. DEXAMETHASONE SODIUM PHOSPHATE [Suspect]
     Active Substance: DEXAMETHASONE SODIUM PHOSPHATE
     Dosage: 8 MILLIGRAM, QD
     Dates: start: 20221228, end: 20221229
  102. DEXAMETHASONE SODIUM PHOSPHATE [Suspect]
     Active Substance: DEXAMETHASONE SODIUM PHOSPHATE
     Dosage: 8 MILLIGRAM, QD
     Route: 065
     Dates: start: 20221228, end: 20221229
  103. DEXAMETHASONE SODIUM PHOSPHATE [Suspect]
     Active Substance: DEXAMETHASONE SODIUM PHOSPHATE
     Dosage: 8 MILLIGRAM, QD
     Dates: start: 20221228, end: 20221229
  104. DEXAMETHASONE SODIUM PHOSPHATE [Suspect]
     Active Substance: DEXAMETHASONE SODIUM PHOSPHATE
     Dosage: 8 MILLIGRAM, QD
     Route: 065
     Dates: start: 20221228, end: 20221229
  105. DEXAMETHASONE SODIUM PHOSPHATE [Suspect]
     Active Substance: DEXAMETHASONE SODIUM PHOSPHATE
     Indication: Prophylaxis
     Dosage: 10 MILLIGRAM, QD
     Dates: start: 20221212, end: 20221212
  106. DEXAMETHASONE SODIUM PHOSPHATE [Suspect]
     Active Substance: DEXAMETHASONE SODIUM PHOSPHATE
     Dosage: 10 MILLIGRAM, QD
     Route: 065
     Dates: start: 20221212, end: 20221212
  107. DEXAMETHASONE SODIUM PHOSPHATE [Suspect]
     Active Substance: DEXAMETHASONE SODIUM PHOSPHATE
     Dosage: 10 MILLIGRAM, QD
     Route: 065
     Dates: start: 20221212, end: 20221212
  108. DEXAMETHASONE SODIUM PHOSPHATE [Suspect]
     Active Substance: DEXAMETHASONE SODIUM PHOSPHATE
     Dosage: 10 MILLIGRAM, QD
     Dates: start: 20221212, end: 20221212
  109. CHLORPHENIRAMINE MALEATE [Suspect]
     Active Substance: CHLORPHENIRAMINE MALEATE
     Indication: Prophylaxis
     Dosage: 4 MILLIGRAM, QD
     Dates: start: 20221212, end: 20221212
  110. CHLORPHENIRAMINE MALEATE [Suspect]
     Active Substance: CHLORPHENIRAMINE MALEATE
     Dosage: 4 MILLIGRAM, QD
     Route: 065
     Dates: start: 20221212, end: 20221212
  111. CHLORPHENIRAMINE MALEATE [Suspect]
     Active Substance: CHLORPHENIRAMINE MALEATE
     Dosage: 4 MILLIGRAM, QD
     Route: 065
     Dates: start: 20221212, end: 20221212
  112. CHLORPHENIRAMINE MALEATE [Suspect]
     Active Substance: CHLORPHENIRAMINE MALEATE
     Dosage: 4 MILLIGRAM, QD
     Dates: start: 20221212, end: 20221212
  113. CHLORPHENIRAMINE MALEATE [Suspect]
     Active Substance: CHLORPHENIRAMINE MALEATE
     Indication: Prophylaxis
     Dosage: 4 MILLIGRAM, QD
     Dates: start: 20221227, end: 20221227
  114. CHLORPHENIRAMINE MALEATE [Suspect]
     Active Substance: CHLORPHENIRAMINE MALEATE
     Dosage: 4 MILLIGRAM, QD
     Route: 065
     Dates: start: 20221227, end: 20221227
  115. CHLORPHENIRAMINE MALEATE [Suspect]
     Active Substance: CHLORPHENIRAMINE MALEATE
     Dosage: 4 MILLIGRAM, QD
     Route: 065
     Dates: start: 20221227, end: 20221227
  116. CHLORPHENIRAMINE MALEATE [Suspect]
     Active Substance: CHLORPHENIRAMINE MALEATE
     Dosage: 4 MILLIGRAM, QD
     Dates: start: 20221227, end: 20221227
  117. ACETAMINOPHEN [Suspect]
     Active Substance: ACETAMINOPHEN
     Indication: Premedication
     Dosage: 650 MILLIGRAM, QD
     Dates: start: 20221212, end: 20221212
  118. ACETAMINOPHEN [Suspect]
     Active Substance: ACETAMINOPHEN
     Dosage: 650 MILLIGRAM, QD
     Route: 065
     Dates: start: 20221212, end: 20221212
  119. ACETAMINOPHEN [Suspect]
     Active Substance: ACETAMINOPHEN
     Dosage: 650 MILLIGRAM, QD
     Route: 065
     Dates: start: 20221212, end: 20221212
  120. ACETAMINOPHEN [Suspect]
     Active Substance: ACETAMINOPHEN
     Dosage: 650 MILLIGRAM, QD
     Dates: start: 20221212, end: 20221212
  121. MINOXIDIL [Suspect]
     Active Substance: MINOXIDIL
     Indication: Hypertension
     Dosage: 5 MILLIGRAM, QD
     Dates: start: 20221219
  122. MINOXIDIL [Suspect]
     Active Substance: MINOXIDIL
     Dosage: 5 MILLIGRAM, QD
     Route: 065
     Dates: start: 20221219
  123. MINOXIDIL [Suspect]
     Active Substance: MINOXIDIL
     Dosage: 5 MILLIGRAM, QD
     Route: 065
     Dates: start: 20221219
  124. MINOXIDIL [Suspect]
     Active Substance: MINOXIDIL
     Dosage: 5 MILLIGRAM, QD
     Dates: start: 20221219
  125. CARVEDILOL [Suspect]
     Active Substance: CARVEDILOL
     Indication: Hypertension
     Dosage: 25 MILLIGRAM, QD
     Dates: start: 20221222
  126. CARVEDILOL [Suspect]
     Active Substance: CARVEDILOL
     Dosage: 25 MILLIGRAM, QD
     Route: 065
     Dates: start: 20221222
  127. CARVEDILOL [Suspect]
     Active Substance: CARVEDILOL
     Dosage: 25 MILLIGRAM, QD
     Route: 065
     Dates: start: 20221222
  128. CARVEDILOL [Suspect]
     Active Substance: CARVEDILOL
     Dosage: 25 MILLIGRAM, QD
     Dates: start: 20221222
  129. NICARDIPINE HYDROCHLORIDE [Suspect]
     Active Substance: NICARDIPINE HYDROCHLORIDE
     Indication: Hypertension
     Dosage: 2 MILLIGRAM, Q6H
     Dates: start: 20221216, end: 20221217
  130. NICARDIPINE HYDROCHLORIDE [Suspect]
     Active Substance: NICARDIPINE HYDROCHLORIDE
     Dosage: 2 MILLIGRAM, Q6H
     Route: 065
     Dates: start: 20221216, end: 20221217
  131. NICARDIPINE HYDROCHLORIDE [Suspect]
     Active Substance: NICARDIPINE HYDROCHLORIDE
     Dosage: 2 MILLIGRAM, Q6H
     Route: 065
     Dates: start: 20221216, end: 20221217
  132. NICARDIPINE HYDROCHLORIDE [Suspect]
     Active Substance: NICARDIPINE HYDROCHLORIDE
     Dosage: 2 MILLIGRAM, Q6H
     Dates: start: 20221216, end: 20221217
  133. DUTASTERIDE [Suspect]
     Active Substance: DUTASTERIDE
     Indication: Benign prostatic hyperplasia
     Dosage: 0.5 MILLIGRAM, QD
     Dates: start: 20221215, end: 20230106
  134. DUTASTERIDE [Suspect]
     Active Substance: DUTASTERIDE
     Dosage: 0.5 MILLIGRAM, QD
     Route: 065
     Dates: start: 20221215, end: 20230106
  135. DUTASTERIDE [Suspect]
     Active Substance: DUTASTERIDE
     Dosage: 0.5 MILLIGRAM, QD
     Route: 065
     Dates: start: 20221215, end: 20230106
  136. DUTASTERIDE [Suspect]
     Active Substance: DUTASTERIDE
     Dosage: 0.5 MILLIGRAM, QD
     Dates: start: 20221215, end: 20230106
  137. PIROXICAM [Suspect]
     Active Substance: PIROXICAM
     Indication: Cancer pain
     Dosage: 96 MILLIGRAM, QD
     Dates: start: 20221216, end: 20221227
  138. PIROXICAM [Suspect]
     Active Substance: PIROXICAM
     Dosage: 96 MILLIGRAM, QD
     Dates: start: 20221216, end: 20221227
  139. PIROXICAM [Suspect]
     Active Substance: PIROXICAM
     Dosage: 96 MILLIGRAM, QD
     Route: 065
     Dates: start: 20221216, end: 20221227
  140. PIROXICAM [Suspect]
     Active Substance: PIROXICAM
     Dosage: 96 MILLIGRAM, QD
     Route: 065
     Dates: start: 20221216, end: 20221227
  141. PIROXICAM [Suspect]
     Active Substance: PIROXICAM
     Dosage: 240 MILLIGRAM, QD
     Dates: start: 20221228
  142. PIROXICAM [Suspect]
     Active Substance: PIROXICAM
     Dosage: 240 MILLIGRAM, QD
     Dates: start: 20221228
  143. PIROXICAM [Suspect]
     Active Substance: PIROXICAM
     Dosage: 240 MILLIGRAM, QD
     Route: 065
     Dates: start: 20221228
  144. PIROXICAM [Suspect]
     Active Substance: PIROXICAM
     Dosage: 240 MILLIGRAM, QD
     Route: 065
     Dates: start: 20221228
  145. NIFEDIPINE [Suspect]
     Active Substance: NIFEDIPINE
     Indication: Hypertension
     Dosage: 30 MILLIGRAM, QD
     Dates: start: 20221217
  146. NIFEDIPINE [Suspect]
     Active Substance: NIFEDIPINE
     Dosage: 30 MILLIGRAM, QD
     Route: 065
     Dates: start: 20221217
  147. NIFEDIPINE [Suspect]
     Active Substance: NIFEDIPINE
     Dosage: 30 MILLIGRAM, QD
     Route: 065
     Dates: start: 20221217
  148. NIFEDIPINE [Suspect]
     Active Substance: NIFEDIPINE
     Dosage: 30 MILLIGRAM, QD
     Dates: start: 20221217
  149. LEUCOVORIN CALCIUM [Suspect]
     Active Substance: LEUCOVORIN CALCIUM
     Indication: Colon cancer
     Dosage: 490 MILLIGRAM, QD
     Dates: start: 20221212, end: 20221212
  150. LEUCOVORIN CALCIUM [Suspect]
     Active Substance: LEUCOVORIN CALCIUM
     Dosage: 490 MILLIGRAM, QD
     Dates: start: 20221212, end: 20221212
  151. LEUCOVORIN CALCIUM [Suspect]
     Active Substance: LEUCOVORIN CALCIUM
     Dosage: 490 MILLIGRAM, QD
     Route: 065
     Dates: start: 20221212, end: 20221212
  152. LEUCOVORIN CALCIUM [Suspect]
     Active Substance: LEUCOVORIN CALCIUM
     Dosage: 490 MILLIGRAM, QD
     Route: 065
     Dates: start: 20221212, end: 20221212
  153. LEUCOVORIN CALCIUM [Suspect]
     Active Substance: LEUCOVORIN CALCIUM
     Dosage: 354 MILLIGRAM, QD
     Dates: start: 20221227, end: 20221227
  154. LEUCOVORIN CALCIUM [Suspect]
     Active Substance: LEUCOVORIN CALCIUM
     Dosage: 354 MILLIGRAM, QD
     Dates: start: 20221227, end: 20221227
  155. LEUCOVORIN CALCIUM [Suspect]
     Active Substance: LEUCOVORIN CALCIUM
     Dosage: 354 MILLIGRAM, QD
     Route: 065
     Dates: start: 20221227, end: 20221227
  156. LEUCOVORIN CALCIUM [Suspect]
     Active Substance: LEUCOVORIN CALCIUM
     Dosage: 354 MILLIGRAM, QD
     Route: 065
     Dates: start: 20221227, end: 20221227
  157. ZOLEDRONIC ACID [Suspect]
     Active Substance: ZOLEDRONIC ACID
     Indication: Colon cancer
     Dosage: 4 MILLIGRAM, QD
     Dates: start: 20221222, end: 20221222
  158. ZOLEDRONIC ACID [Suspect]
     Active Substance: ZOLEDRONIC ACID
     Dosage: 4 MILLIGRAM, QD
     Route: 065
     Dates: start: 20221222, end: 20221222
  159. ZOLEDRONIC ACID [Suspect]
     Active Substance: ZOLEDRONIC ACID
     Dosage: 4 MILLIGRAM, QD
     Route: 065
     Dates: start: 20221222, end: 20221222
  160. ZOLEDRONIC ACID [Suspect]
     Active Substance: ZOLEDRONIC ACID
     Dosage: 4 MILLIGRAM, QD
     Dates: start: 20221222, end: 20221222
  161. PIPERACILLIN SODIUM\TAZOBACTAM SODIUM [Suspect]
     Active Substance: PIPERACILLIN SODIUM\TAZOBACTAM SODIUM
     Indication: Pyrexia
     Dosage: 4.5 GRAM, Q8H
     Dates: start: 20221223, end: 20221225
  162. PIPERACILLIN SODIUM\TAZOBACTAM SODIUM [Suspect]
     Active Substance: PIPERACILLIN SODIUM\TAZOBACTAM SODIUM
     Dosage: 4.5 GRAM, Q8H
     Route: 065
     Dates: start: 20221223, end: 20221225
  163. PIPERACILLIN SODIUM\TAZOBACTAM SODIUM [Suspect]
     Active Substance: PIPERACILLIN SODIUM\TAZOBACTAM SODIUM
     Dosage: 4.5 GRAM, Q8H
     Route: 065
     Dates: start: 20221223, end: 20221225
  164. PIPERACILLIN SODIUM\TAZOBACTAM SODIUM [Suspect]
     Active Substance: PIPERACILLIN SODIUM\TAZOBACTAM SODIUM
     Dosage: 4.5 GRAM, Q8H
     Dates: start: 20221223, end: 20221225
  165. MORPHINE SULFATE [Suspect]
     Active Substance: MORPHINE SULFATE
     Indication: Cancer pain
  166. MORPHINE SULFATE [Suspect]
     Active Substance: MORPHINE SULFATE
     Route: 065
  167. MORPHINE SULFATE [Suspect]
     Active Substance: MORPHINE SULFATE
     Route: 065
  168. MORPHINE SULFATE [Suspect]
     Active Substance: MORPHINE SULFATE
  169. ALBUMIN HUMAN [Suspect]
     Active Substance: ALBUMIN HUMAN
     Indication: Hypoalbuminaemia
     Dosage: 100 MILLILITER, QD
     Dates: start: 20221220, end: 20221221
  170. ALBUMIN HUMAN [Suspect]
     Active Substance: ALBUMIN HUMAN
     Dosage: 100 MILLILITER, QD
     Route: 065
     Dates: start: 20221220, end: 20221221
  171. ALBUMIN HUMAN [Suspect]
     Active Substance: ALBUMIN HUMAN
     Dosage: 100 MILLILITER, QD
     Route: 065
     Dates: start: 20221220, end: 20221221
  172. ALBUMIN HUMAN [Suspect]
     Active Substance: ALBUMIN HUMAN
     Dosage: 100 MILLILITER, QD
     Dates: start: 20221220, end: 20221221
  173. BENZYDAMINE HYDROCHLORIDE [Suspect]
     Active Substance: BENZYDAMINE HYDROCHLORIDE
     Indication: Prophylaxis
     Dosage: 15 MILLILITER, Q8H
     Dates: start: 20221219
  174. BENZYDAMINE HYDROCHLORIDE [Suspect]
     Active Substance: BENZYDAMINE HYDROCHLORIDE
     Dosage: 15 MILLILITER, Q8H
     Route: 065
     Dates: start: 20221219
  175. BENZYDAMINE HYDROCHLORIDE [Suspect]
     Active Substance: BENZYDAMINE HYDROCHLORIDE
     Dosage: 15 MILLILITER, Q8H
     Route: 065
     Dates: start: 20221219
  176. BENZYDAMINE HYDROCHLORIDE [Suspect]
     Active Substance: BENZYDAMINE HYDROCHLORIDE
     Dosage: 15 MILLILITER, Q8H
     Dates: start: 20221219
  177. FENTANYL [Suspect]
     Active Substance: FENTANYL
     Indication: Prophylaxis
     Dosage: 1200 MICROGRAM, QD
     Dates: start: 20230107
  178. FENTANYL [Suspect]
     Active Substance: FENTANYL
     Indication: Colon cancer
     Dosage: 1200 MICROGRAM, QD
     Route: 062
     Dates: start: 20230107
  179. FENTANYL [Suspect]
     Active Substance: FENTANYL
     Dosage: 1200 MICROGRAM, QD
     Route: 062
     Dates: start: 20230107
  180. FENTANYL [Suspect]
     Active Substance: FENTANYL
     Dosage: 1200 MICROGRAM, QD
     Dates: start: 20230107

REACTIONS (1)
  - Pneumonia [Recovered/Resolved with Sequelae]

NARRATIVE: CASE EVENT DATE: 20221229
